APPROVED DRUG PRODUCT: TIMOLOL MALEATE
Active Ingredient: TIMOLOL MALEATE
Strength: EQ 0.5% BASE
Dosage Form/Route: SOLUTION/DROPS;OPHTHALMIC
Application: A074747 | Product #001 | TE Code: AT1
Applicant: PACIFIC PHARMA
Approved: Mar 25, 1997 | RLD: No | RS: No | Type: RX